FAERS Safety Report 8174738-7 (Version None)
Quarter: 2012Q1

REPORT INFORMATION
  Report Type: 
  Country: None (occurrence: None)
  Receive Date: 20120229
  Receipt Date: 20120223
  Transmission Date: 20120608
  Serious: Yes (Other)
  Sender: FDA-Public Use
  Company Number: JP-GLAXOSMITHKLINE-B0784414A

PATIENT
  Age: 8 Year

DRUGS (1)
  1. RELENZA [Suspect]
     Indication: INFLUENZA
     Route: 055
     Dates: start: 20120220, end: 20120222

REACTIONS (7)
  - DIZZINESS [None]
  - HEADACHE [None]
  - PYREXIA [None]
  - PRODUCTIVE COUGH [None]
  - HALLUCINATION [None]
  - COUGH [None]
  - NAUSEA [None]
